FAERS Safety Report 10232755 (Version 2)
Quarter: 2014Q3

REPORT INFORMATION
  Report Type: Spontaneous
  Country: US (occurrence: US)
  Receive Date: 20140612
  Receipt Date: 20140715
  Transmission Date: 20150326
  Serious: No
  Sender: FDA-Public Use
  Company Number: US-009507513-1406USA006254

PATIENT
  Age: 54 Year
  Sex: Female
  Weight: 45.35 kg

DRUGS (3)
  1. OXYTROL FOR WOMEN [Suspect]
     Active Substance: OXYBUTYNIN
     Indication: HYPERTONIC BLADDER
     Dosage: UNK, UNKNOWN
     Route: 062
     Dates: start: 20140603, end: 201406
  2. ALENDRONATE SODIUM. [Concomitant]
     Active Substance: ALENDRONATE SODIUM
     Indication: OSTEOPENIA
     Dosage: UNK, UNKNOWN
  3. PIROXICAM. [Concomitant]
     Active Substance: PIROXICAM
     Indication: ARTHRITIS
     Dosage: UNK, UNKNOWN

REACTIONS (4)
  - Rash [Not Recovered/Not Resolved]
  - Pruritus [Not Recovered/Not Resolved]
  - Application site rash [Unknown]
  - Application site erythema [Unknown]

NARRATIVE: CASE EVENT DATE: 201406
